FAERS Safety Report 25676334 (Version 1)
Quarter: 2025Q3

REPORT INFORMATION
  Report Type: Spontaneous
  Country: US (occurrence: None)
  Receive Date: 20250813
  Receipt Date: 20250813
  Transmission Date: 20251020
  Serious: Yes (Hospitalization)
  Sender: FDA-CTU
  Company Number: None

PATIENT
  Age: 71 Year
  Sex: Male

DRUGS (16)
  1. TACROLIMUS [Suspect]
     Active Substance: TACROLIMUS
     Indication: Lung transplant
     Dosage: FREQUENCY : DAILY;?
     Route: 048
     Dates: start: 20250617
  2. MYCOPHENOLATE MOFETIL [Suspect]
     Active Substance: MYCOPHENOLATE MOFETIL
     Indication: Lung transplant
     Dosage: FREQUENCY : TWICE A DAY;?
     Route: 048
     Dates: start: 20250617
  3. ATOVAQUONE [Concomitant]
     Active Substance: ATOVAQUONE
  4. AZITHROMYCIN [Concomitant]
     Active Substance: AZITHROMYCIN
  5. Calcium citrate +vitamin D3 [Concomitant]
  6. ELIQUIS [Concomitant]
     Active Substance: APIXABAN
  7. FLUDROCORTISONE [Concomitant]
     Active Substance: FLUDROCORTISONE
  8. FLUTICASONE [Concomitant]
     Active Substance: FLUTICASONE
  9. MAGNESIUM OXIDE [Concomitant]
     Active Substance: MAGNESIUM OXIDE
  10. MECLIZINE [Concomitant]
     Active Substance: MECLIZINE HYDROCHLORIDE
  11. MELATONIN [Concomitant]
     Active Substance: MELATONIN
  12. OMEPRAZOLE [Concomitant]
     Active Substance: OMEPRAZOLE
  13. PRAVASTATIN [Concomitant]
     Active Substance: PRAVASTATIN
  14. PREDNISONE [Concomitant]
     Active Substance: PREDNISONE
  15. SERTRALINE [Concomitant]
     Active Substance: SERTRALINE HYDROCHLORIDE
  16. VALGANCICLOVIR [Concomitant]
     Active Substance: VALGANCICLOVIR

REACTIONS (2)
  - Dyspnoea [None]
  - Enterococcal infection [None]

NARRATIVE: CASE EVENT DATE: 20250805
